FAERS Safety Report 11517827 (Version 3)
Quarter: 2015Q4

REPORT INFORMATION
  Report Type: Spontaneous
  Country: US (occurrence: US)
  Receive Date: 20150917
  Receipt Date: 20151015
  Transmission Date: 20160304
  Serious: Yes (Other)
  Sender: FDA-Public Use
  Company Number: US-SA-2015SA139858

PATIENT
  Age: 68 Year
  Sex: Female
  Weight: 44 kg

DRUGS (1)
  1. NASACORT ALLERGY 24HR [Suspect]
     Active Substance: TRIAMCINOLONE ACETONIDE
     Dosage: 2 SQUATS IN EACH NOSTRILS TWICE A DAY
     Route: 045

REACTIONS (5)
  - Abdominal discomfort [Unknown]
  - Rectal haemorrhage [Unknown]
  - Malaise [Unknown]
  - Headache [Unknown]
  - Feeling abnormal [Unknown]
